FAERS Safety Report 9291038 (Version 2)
Quarter: 2013Q3

REPORT INFORMATION
  Report Type: Spontaneous
  Country: GB (occurrence: None)
  Receive Date: 20130513
  Receipt Date: 20130726
  Transmission Date: 20140515
  Serious: Yes (Other)
  Sender: FDA-Public Use
  Company Number: AUR-APL-2013-03725

PATIENT
  Age: 35 Year
  Sex: Female

DRUGS (1)
  1. FLUCONAZOLE [Suspect]
     Indication: CANDIDA INFECTION

REACTIONS (3)
  - Hypersensitivity [None]
  - Urticaria [None]
  - Fear [None]
